FAERS Safety Report 19238096 (Version 1)
Quarter: 2021Q2

REPORT INFORMATION
  Report Type: Spontaneous
  Country: US (occurrence: US)
  Receive Date: 20210510
  Receipt Date: 20210510
  Transmission Date: 20210717
  Serious: Yes (Hospitalization)
  Sender: FDA-Public Use
  Company Number: None

PATIENT
  Age: 73 Year
  Sex: Female

DRUGS (2)
  1. PROLIA [Suspect]
     Active Substance: DENOSUMAB
     Indication: OSTEOPOROSIS
     Dosage: ?          OTHER FREQUENY:EVERY 6 MONTHS;?
     Route: 058
     Dates: start: 20180515
  2. REPATHA [Concomitant]
     Active Substance: EVOLOCUMAB
     Dates: start: 20190812

REACTIONS (2)
  - Product dose omission issue [None]
  - Hip arthroplasty [None]

NARRATIVE: CASE EVENT DATE: 20210301
